FAERS Safety Report 12461797 (Version 4)
Quarter: 2019Q1

REPORT INFORMATION
  Report Type: Spontaneous
  Country: US (occurrence: US)
  Receive Date: 20160613
  Receipt Date: 20190325
  Transmission Date: 20190417
  Serious: Yes (Death, Other)
  Sender: FDA-Public Use
  Company Number: US-ACTELION-A-NJ2016-137343

PATIENT
  Age: 54 Year
  Sex: Female

DRUGS (10)
  1. HYDROXYCHLOROQUINE [Concomitant]
     Active Substance: HYDROXYCHLOROQUINE
  2. MELOXICAM. [Concomitant]
     Active Substance: MELOXICAM
  3. PYRIDOXINE [Concomitant]
     Active Substance: PYRIDOXINE
  4. OPSUMIT [Suspect]
     Active Substance: MACITENTAN
     Indication: PULMONARY ARTERIAL HYPERTENSION
     Dosage: 10 MG, QD
     Route: 048
     Dates: start: 20151027, end: 20160307
  5. SILDENAFIL. [Concomitant]
     Active Substance: SILDENAFIL
  6. LASIX [Concomitant]
     Active Substance: FUROSEMIDE
  7. PREDNISONE. [Concomitant]
     Active Substance: PREDNISONE
  8. PROPRANOLOL [Concomitant]
     Active Substance: PROPRANOLOL HYDROCHLORIDE
  9. LEVOTHYROXINE. [Concomitant]
     Active Substance: LEVOTHYROXINE
  10. KLOR-CON [Concomitant]
     Active Substance: POTASSIUM CHLORIDE

REACTIONS (13)
  - Alanine aminotransferase increased [Not Recovered/Not Resolved]
  - Dialysis [Unknown]
  - Renal failure [Fatal]
  - Aspartate aminotransferase increased [Not Recovered/Not Resolved]
  - Sepsis [Fatal]
  - Blood bilirubin increased [Recovered/Resolved]
  - Mechanical ventilation [Unknown]
  - Systemic lupus erythematosus [Fatal]
  - Pneumonia [Fatal]
  - Myocardial necrosis marker increased [Unknown]
  - Abdominal pain [Unknown]
  - Hepatic enzyme increased [Not Recovered/Not Resolved]
  - Vomiting [Unknown]

NARRATIVE: CASE EVENT DATE: 20160226
